FAERS Safety Report 4722481-6 (Version None)
Quarter: 2005Q3

REPORT INFORMATION
  Report Type: 
  Country: None (occurrence: None)
  Receive Date: 20050722
  Receipt Date: 20050509
  Transmission Date: 20060218
  Serious: No
  Sender: FDA-Public Use
  Company Number: US-GLAXOSMITHKLINE-A0557774A

PATIENT
  Age: 70 Year
  Sex: Male

DRUGS (5)
  1. AVANDIA [Suspect]
     Dosage: 2MG TWICE PER DAY
     Route: 048
     Dates: start: 20050201
  2. METFORMIN [Suspect]
  3. LISINOPRIL [Concomitant]
  4. MULTIVITAMIN [Concomitant]
  5. AVANDAMET [Concomitant]

REACTIONS (1)
  - DRUG INEFFECTIVE [None]
